FAERS Safety Report 8114530-2 (Version None)
Quarter: 2012Q1

REPORT INFORMATION
  Report Type: 
  Country: None (occurrence: None)
  Receive Date: 20120206
  Receipt Date: 20120127
  Transmission Date: 20120608
  Serious: No
  Sender: FDA-Public Use
  Company Number: US-PFIZER INC-2012025877

PATIENT
  Sex: Male
  Weight: 97.052 kg

DRUGS (8)
  1. MOTRIN [Concomitant]
     Dosage: 800 MG, UNK
  2. SUTENT [Suspect]
     Dosage: 25 MG, 1X/DAY FOR 4 WEEKS ON AND 2 WEEKS OFF
     Route: 048
     Dates: start: 20111104
  3. QUINAPRIL [Concomitant]
     Dosage: 20 MG, UNK
  4. SUTENT [Suspect]
     Dosage: 37.5 MG, 1X/DAY FOR 4 WEEKS ON AND 2 WEEKS OFF
     Route: 048
  5. NEXIUM [Concomitant]
     Dosage: 40 MG, UNK
  6. PROZAC [Concomitant]
     Dosage: 20 MG, UNK
  7. PERCOCET [Concomitant]
     Dosage: 10-325 MG
  8. AMLODIPINE [Concomitant]
     Dosage: 10 MG, UNK

REACTIONS (5)
  - ERYTHEMA [None]
  - FATIGUE [None]
  - BLOOD PRESSURE INCREASED [None]
  - CHEST PAIN [None]
  - ARTHRALGIA [None]
